FAERS Safety Report 9503584 (Version 1)
Quarter: 2013Q1

REPORT INFORMATION
  Report Type: Spontaneous
  Country: US (occurrence: None)
  Receive Date: 20130130
  Receipt Date: 20130130
  Transmission Date: 20140127
  Serious: Yes (Hospitalization, Other)
  Sender: FDA-Public Use
  Company Number: US201210010184

PATIENT
  Age: 55 Year
  Sex: Male

DRUGS (3)
  1. BYDUREON [Suspect]
     Indication: TYPE 2 DIABETES MELLITUS
     Dosage: 2 MG, WEEKLY (1/W), SUBCUTANEOUS
     Route: 058
  2. METFORMIN (METFORMIN) [Concomitant]
  3. LANTUS (INSULIN GLARGINE) [Concomitant]

REACTIONS (2)
  - Vomiting [None]
  - Nausea [None]
